FAERS Safety Report 12383847 (Version 2)
Quarter: 2016Q2

REPORT INFORMATION
  Report Type: Spontaneous
  Country: US (occurrence: US)
  Receive Date: 20160519
  Receipt Date: 20160530
  Transmission Date: 20160815
  Serious: Yes (Life-Threatening, Hospitalization, Other)
  Sender: FDA-Public Use
  Company Number: US-APOTEX-2016AP008517

PATIENT
  Age: 16 Year
  Sex: Female

DRUGS (1)
  1. BUPROPION HYDROCHLORIDE. [Suspect]
     Active Substance: BUPROPION HYDROCHLORIDE
     Indication: PRODUCT USED FOR UNKNOWN INDICATION
     Dosage: 60 TABLETS OF 150MG
     Route: 048

REACTIONS (8)
  - Pulseless electrical activity [Recovering/Resolving]
  - Cardiogenic shock [Recovering/Resolving]
  - Status epilepticus [Recovered/Resolved]
  - Cardiomyopathy [Unknown]
  - Condition aggravated [Unknown]
  - Overdose [Recovering/Resolving]
  - Generalised tonic-clonic seizure [Recovered/Resolved]
  - Cardiac output decreased [Unknown]
